FAERS Safety Report 8818598 (Version 1)
Quarter: 2012Q4

REPORT INFORMATION
  Report Type: Spontaneous
  Country: US (occurrence: None)
  Receive Date: 20121004
  Receipt Date: 20121004
  Transmission Date: 20130627
  Serious: Yes (Other)
  Sender: FDA-Public Use
  Company Number: None

PATIENT
  Age: 73 Year
  Sex: Female
  Weight: 55.79 kg

DRUGS (2)
  1. POLYCARBOPHIL [Suspect]
     Indication: MENOPAUSAL DISORDER
     Dosage: 1 application, 3x, week
     Dates: start: 201009
  2. POLYCARBOPHIL [Suspect]
     Indication: MENOPAUSAL DISORDER
     Dates: start: 201209

REACTIONS (2)
  - Burning sensation [None]
  - Vulvovaginal erythema [None]
